FAERS Safety Report 8128183-0 (Version None)
Quarter: 2011Q4

REPORT INFORMATION
  Report Type: 
  Country: None (occurrence: None)
  Receive Date: 20111228
  Receipt Date: 20110408
  Transmission Date: 20120403
  Serious: Yes (Other)
  Sender: FDA-Public Use
  Company Number: WAES 1104USA01592

PATIENT
  Age: 81 Year
  Sex: Male
  Weight: 122.0176 kg

DRUGS (6)
  1. ATENOLOL [Concomitant]
  2. LISINOPRIL [Concomitant]
  3. ALLOPURINOL [Concomitant]
  4. ZETIA [Suspect]
     Indication: HYPERLIPIDAEMIA
     Dosage: 10 MG/DAILY/PO
     Route: 048
     Dates: start: 20101101, end: 20110201
  5. HYDRODIURIL [Concomitant]
  6. GLYBURIDE [Concomitant]

REACTIONS (2)
  - LIVER FUNCTION TEST ABNORMAL [None]
  - BLOOD CREATINE PHOSPHOKINASE INCREASED [None]
